FAERS Safety Report 15281458 (Version 1)
Quarter: 2018Q4

REPORT INFORMATION
  Report Type: Spontaneous
  Country: SE (occurrence: SE)
  Receive Date: 20180815
  Receipt Date: 20180815
  Transmission Date: 20190204
  Serious: Yes (Death)
  Sender: FDA-Public Use
  Company Number: SE-TEVA-2018-SE-941361

PATIENT
  Age: 71 Year
  Sex: Female

DRUGS (10)
  1. PRADAXA [Concomitant]
     Active Substance: DABIGATRAN ETEXILATE MESYLATE
     Dates: start: 20170905, end: 20180701
  2. EMGESAN [Concomitant]
     Active Substance: MAGNESIUM HYDROXIDE
     Dates: start: 20170427, end: 20180701
  3. SYNJARDY [Suspect]
     Active Substance: EMPAGLIFLOZIN\METFORMIN HYDROCHLORIDE
     Indication: DIABETES MELLITUS
     Dosage: 12,5/850 MG 1 X1
     Route: 048
     Dates: start: 20171201, end: 20180701
  4. DIGOXIN. [Concomitant]
     Active Substance: DIGOXIN
     Dates: start: 20170905, end: 20180701
  5. SPIRONOLAKTON [Concomitant]
     Active Substance: SPIRONOLACTONE
     Dates: start: 20170427, end: 20180701
  6. ATORVASTATIN [Concomitant]
     Active Substance: ATORVASTATIN
     Dates: start: 20170427, end: 20180701
  7. TRULICITY [Concomitant]
     Active Substance: DULAGLUTIDE
     Dates: start: 20171205, end: 20180701
  8. METFORMIN [Suspect]
     Active Substance: METFORMIN HYDROCHLORIDE
     Indication: DIABETES MELLITUS
     Dosage: 850 MILLIGRAM DAILY;
     Route: 048
     Dates: start: 20161204, end: 20180701
  9. METOPROLOL DEPOT [Concomitant]
     Dates: start: 20170905, end: 20180701
  10. FURIX [Concomitant]
     Active Substance: FUROSEMIDE
     Dates: start: 20170905, end: 20180701

REACTIONS (1)
  - Lactic acidosis [Fatal]

NARRATIVE: CASE EVENT DATE: 20180701
